FAERS Safety Report 19148480 (Version 1)
Quarter: 2021Q2

REPORT INFORMATION
  Report Type: Spontaneous
  Country: DE (occurrence: DE)
  Receive Date: 20210416
  Receipt Date: 20210416
  Transmission Date: 20210717
  Serious: Yes (Other)
  Sender: FDA-Public Use
  Company Number: DE-MYLANLABS-2021M1022280

PATIENT
  Age: 1 Day
  Sex: Female
  Weight: 2.59 kg

DRUGS (4)
  1. CLOMIFENE [Concomitant]
     Active Substance: CLOMIPHENE
     Indication: INFERTILITY FEMALE
     Dosage: UNK
     Route: 064
  2. CITALOPRAM MYLAN [Suspect]
     Active Substance: CITALOPRAM HYDROBROMIDE
     Indication: DEPRESSION
     Dosage: 20 [MG/D ]/ FROM 0?9+6 AND AGAIN FROM 21+2?39+2, VARYING DOSAGE 10?20MG DAILY
     Route: 064
     Dates: start: 20190723, end: 20200423
  3. LAMOTRIGIN [Suspect]
     Active Substance: LAMOTRIGINE
     Indication: EPILEPSY
     Dosage: 250 [MG/D ]
     Route: 064
     Dates: start: 20190723, end: 20200423
  4. FOLSAEURE [Concomitant]
     Active Substance: FOLIC ACID
     Indication: PROPHYLAXIS OF NEURAL TUBE DEFECT
     Dosage: UNK
     Route: 064

REACTIONS (2)
  - Small for dates baby [Recovered/Resolved]
  - Foetal exposure during pregnancy [Recovered/Resolved]

NARRATIVE: CASE EVENT DATE: 20190723
